FAERS Safety Report 8561523-7 (Version None)
Quarter: 2012Q3

REPORT INFORMATION
  Report Type: 
  Country: None (occurrence: None)
  Receive Date: 20120802
  Receipt Date: 20120726
  Transmission Date: 20120928
  Serious: Yes (Hospitalization)
  Sender: FDA-Public Use
  Company Number: DE-JNJFOC-20120712753

PATIENT
  Sex: Female
  Weight: 58 kg

DRUGS (2)
  1. PALIPERIDONE [Suspect]
     Indication: SCHIZOAFFECTIVE DISORDER
     Route: 030
     Dates: start: 20120702
  2. CYMBALTA [Concomitant]
     Indication: SCHIZOAFFECTIVE DISORDER
     Dosage: DAILY DOSE 90 (NO UNIT REPORTED)
     Route: 065
     Dates: start: 20120101

REACTIONS (2)
  - GAMMA-GLUTAMYLTRANSFERASE INCREASED [None]
  - ALANINE AMINOTRANSFERASE INCREASED [None]
